FAERS Safety Report 22113663 (Version 2)
Quarter: 2023Q2

REPORT INFORMATION
  Report Type: Spontaneous
  Country: FR (occurrence: FR)
  Receive Date: 20230320
  Receipt Date: 20230407
  Transmission Date: 20230722
  Serious: Yes (Other)
  Sender: FDA-Public Use
  Company Number: FR-AMGEN-FRASP2023040211

PATIENT
  Age: 53 Year
  Sex: Male

DRUGS (1)
  1. OTEZLA [Suspect]
     Active Substance: APREMILAST
     Indication: Psoriasis
     Dosage: 30 MILLIGRAM, QD
     Route: 065
     Dates: start: 202110, end: 202205

REACTIONS (3)
  - Diverticulum intestinal [Unknown]
  - Dyspepsia [Unknown]
  - Off label use [Unknown]
